FAERS Safety Report 6764835-2 (Version None)
Quarter: 2010Q2

REPORT INFORMATION
  Report Type: 
  Country: None (occurrence: None)
  Receive Date: 20100610
  Receipt Date: 20100602
  Transmission Date: 20101027
  Serious: Yes (Hospitalization)
  Sender: FDA-Public Use
  Company Number: CA-PFIZER INC-2010070234

PATIENT
  Sex: Female

DRUGS (1)
  1. LIPITOR [Suspect]
     Dosage: 40 MG, 1X/DAY

REACTIONS (9)
  - BACK PAIN [None]
  - COUGH [None]
  - FATIGUE [None]
  - NAUSEA [None]
  - PAIN IN EXTREMITY [None]
  - POLYARTERITIS NODOSA [None]
  - PYREXIA [None]
  - RENAL FAILURE [None]
  - VOMITING [None]
